FAERS Safety Report 9226154 (Version 1)
Quarter: 2013Q2

REPORT INFORMATION
  Report Type: Spontaneous
  Country: US (occurrence: US)
  Receive Date: 20130411
  Receipt Date: 20130411
  Transmission Date: 20140414
  Serious: No
  Sender: FDA-Public Use
  Company Number: US-B.I. PHARMACEUTICALS,INC./RIDGEFIELD-2013-BI-09287BP

PATIENT
  Age: 7 Year
  Sex: Male

DRUGS (4)
  1. CLONIDINE [Suspect]
     Dates: start: 2012, end: 201301
  2. KAPVAY [Suspect]
     Dates: start: 201210, end: 20121223
  3. KAPVAY [Suspect]
     Dates: start: 201301
  4. ABILIFY [Concomitant]

REACTIONS (2)
  - Aggression [Recovered/Resolved]
  - Somnolence [Recovered/Resolved]
